FAERS Safety Report 24658090 (Version 3)
Quarter: 2025Q2

REPORT INFORMATION
  Report Type: Report from Study
  Country: US (occurrence: US)
  Receive Date: 20241125
  Receipt Date: 20250505
  Transmission Date: 20250717
  Serious: Yes (Other)
  Sender: UCB
  Company Number: US-UCBSA-2024060070

PATIENT
  Age: 12 Year
  Sex: Female
  Weight: 34.9 kg

DRUGS (2)
  1. FINTEPLA [Suspect]
     Active Substance: FENFLURAMINE
     Indication: Severe myoclonic epilepsy of infancy
     Dates: start: 20210511
  2. FINTEPLA [Suspect]
     Active Substance: FENFLURAMINE
     Dosage: 9.9 MILLIGRAM, ONCE DAILY (QD)

REACTIONS (1)
  - Tricuspid valve incompetence [Unknown]

NARRATIVE: CASE EVENT DATE: 20241003
